FAERS Safety Report 7544343-1 (Version None)
Quarter: 2011Q2

REPORT INFORMATION
  Report Type: 
  Country: None (occurrence: None)
  Receive Date: 20110613
  Receipt Date: 20080219
  Transmission Date: 20111010
  Serious: Yes (Death, Hospitalization, Other)
  Sender: FDA-Public Use
  Company Number: PHHO2005CA16590

PATIENT
  Sex: Female

DRUGS (3)
  1. CLOZAPINE [Suspect]
     Route: 048
     Dates: start: 20051019
  2. CLOZAPINE [Suspect]
     Indication: SCHIZOPHRENIA
     Dosage: 600 MG, UNK
     Route: 048
     Dates: start: 19920325, end: 20050915
  3. CLOZAPINE [Suspect]
     Dates: start: 20050916, end: 20051018

REACTIONS (4)
  - PNEUMONIA [None]
  - CONFUSIONAL STATE [None]
  - DEATH [None]
  - LOWER RESPIRATORY TRACT INFECTION [None]
